FAERS Safety Report 7471287-6 (Version None)
Quarter: 2011Q2

REPORT INFORMATION
  Report Type: 
  Country: None (occurrence: None)
  Receive Date: 20110510
  Receipt Date: 20110505
  Transmission Date: 20111010
  Serious: Yes (Other)
  Sender: FDA-Public Use
  Company Number: IL-ABBOTT-11P-082-0723610-00

PATIENT
  Sex: Female

DRUGS (3)
  1. HUMIRA [Suspect]
     Indication: SYSTEMIC LUPUS ERYTHEMATOSUS
  2. PLAQUENIL [Concomitant]
     Indication: SYSTEMIC LUPUS ERYTHEMATOSUS
     Route: 048
  3. ELTROXIN [Concomitant]
     Indication: HYPOTHYROIDISM
     Dosage: 150MCG DAILY
     Route: 048

REACTIONS (7)
  - DYSPNOEA [None]
  - PALPITATIONS [None]
  - NAUSEA [None]
  - SYNCOPE [None]
  - ASTHENIA [None]
  - DIZZINESS [None]
  - CHEST DISCOMFORT [None]
